FAERS Safety Report 4666146-8 (Version None)
Quarter: 2005Q2

REPORT INFORMATION
  Report Type: 
  Country: None (occurrence: None)
  Receive Date: 20050519
  Receipt Date: 20050509
  Transmission Date: 20051028
  Serious: Yes (Hospitalization)
  Sender: FDA-Public Use
  Company Number: US-JNJFOC-20050502804

PATIENT
  Age: 85 Year
  Sex: Female

DRUGS (17)
  1. RAZADYNE [Suspect]
     Indication: DEMENTIA
  2. ASPIRIN [Concomitant]
  3. FOSAMAX [Concomitant]
  4. PLAVIX [Concomitant]
  5. NAMENDA [Concomitant]
  6. NAPROXEN [Concomitant]
  7. PREVICIDE [Concomitant]
  8. MAGNESIUM [Concomitant]
  9. MULTI-VITAMINS [Concomitant]
  10. MULTI-VITAMINS [Concomitant]
  11. MULTI-VITAMINS [Concomitant]
  12. MULTI-VITAMINS [Concomitant]
  13. MULTI-VITAMINS [Concomitant]
  14. MULTI-VITAMINS [Concomitant]
  15. MULTI-VITAMINS [Concomitant]
  16. MULTI-VITAMINS [Concomitant]
  17. ZOCOR [Concomitant]

REACTIONS (2)
  - DIARRHOEA [None]
  - VIRAL INFECTION [None]
